FAERS Safety Report 6331977-5 (Version None)
Quarter: 2009Q3

REPORT INFORMATION
  Report Type: 
  Country: None (occurrence: None)
  Receive Date: 20090828
  Receipt Date: 20090821
  Transmission Date: 20100115
  Serious: Yes (Hospitalization)
  Sender: FDA-Public Use
  Company Number: US-BIOGENIDEC-2009BI019541

PATIENT
  Sex: Female

DRUGS (1)
  1. AVONEX [Suspect]
     Indication: MULTIPLE SCLEROSIS
     Route: 030
     Dates: start: 20071208, end: 20080417

REACTIONS (4)
  - GASTROINTESTINAL MOTILITY DISORDER [None]
  - VISUAL IMPAIRMENT [None]
  - WEIGHT DECREASED [None]
  - WEIGHT INCREASED [None]
